FAERS Safety Report 15621908 (Version 1)
Quarter: 2018Q4

REPORT INFORMATION
  Report Type: Spontaneous
  Country: FR (occurrence: FR)
  Receive Date: 20181115
  Receipt Date: 20181115
  Transmission Date: 20190205
  Serious: Yes (Life-Threatening, Other)
  Sender: FDA-Public Use
  Company Number: FR-GLAXOSMITHKLINE-B0442645A

PATIENT
  Age: 59 Year
  Sex: Female
  Weight: 45 kg

DRUGS (6)
  1. DUROGESIC [Suspect]
     Active Substance: FENTANYL
     Indication: PRODUCT USED FOR UNKNOWN INDICATION
     Dosage: UNK
     Route: 003
     Dates: start: 20040601
  2. AUGMENTIN [Concomitant]
     Active Substance: AMOXICILLIN\CLAVULANATE POTASSIUM
     Indication: PNEUMOCOCCAL INFECTION
     Route: 065
     Dates: start: 20060818
  3. LEXOMIL [Concomitant]
     Active Substance: BROMAZEPAM
     Route: 065
  4. ZINNAT [Suspect]
     Active Substance: CEFUROXIME AXETIL
     Indication: LUNG INFECTION
     Dosage: 2 DF, BID
     Route: 048
     Dates: start: 20060804, end: 20060817
  5. SECTRAL [Concomitant]
     Active Substance: ACEBUTOLOL HYDROCHLORIDE
     Route: 065
  6. PREVISCAN (FLUINDIONE) [Suspect]
     Active Substance: FLUINDIONE
     Indication: JUGULAR VEIN THROMBOSIS
     Dosage: UNK
     Route: 048
     Dates: start: 20060215, end: 20060804

REACTIONS (4)
  - Activated partial thromboplastin time prolonged [Unknown]
  - Acquired haemophilia [Not Recovered/Not Resolved]
  - Coagulation factor decreased [Recovered/Resolved]
  - Haemoptysis [Unknown]

NARRATIVE: CASE EVENT DATE: 20060807
